FAERS Safety Report 5213200-8 (Version None)
Quarter: 2007Q1

REPORT INFORMATION
  Report Type: 
  Country: None (occurrence: None)
  Receive Date: 20070119
  Receipt Date: 20070115
  Transmission Date: 20070707
  Serious: Yes (Hospitalization)
  Sender: FDA-Public Use
  Company Number: GB-GLAXOSMITHKLINE-B0454162A

PATIENT
  Sex: Male

DRUGS (2)
  1. AUGMENTIN '125' [Suspect]
     Route: 048
     Dates: start: 20061201
  2. AMOXICILLIN + CLAVULANATE POTASSIUM [Concomitant]
     Dosage: 625MG PER DAY
     Route: 065
     Dates: start: 20061201, end: 20061201

REACTIONS (6)
  - ANAPHYLACTIC REACTION [None]
  - HYPERHIDROSIS [None]
  - OEDEMA MOUTH [None]
  - PARAESTHESIA [None]
  - PHARYNGEAL OEDEMA [None]
  - RASH GENERALISED [None]
